FAERS Safety Report 7589262-X (Version None)
Quarter: 2011Q3

REPORT INFORMATION
  Report Type: 
  Country: None (occurrence: None)
  Receive Date: 20110705
  Receipt Date: 20110630
  Transmission Date: 20111222
  Serious: Yes (Other)
  Sender: FDA-Public Use
  Company Number: CA-JNJFOC-20110700450

PATIENT
  Age: 12 Month
  Sex: Female

DRUGS (1)
  1. PANCREAZE [Suspect]
     Indication: PRODUCT USED FOR UNKNOWN INDICATION
     Dosage: 10 (UNSPECIFIED UNIT)
     Route: 048

REACTIONS (2)
  - PRODUCT QUALITY ISSUE [None]
  - INTESTINAL OBSTRUCTION [None]
